FAERS Safety Report 13344806 (Version 7)
Quarter: 2018Q1

REPORT INFORMATION
  Report Type: Report from Study
  Country: CO (occurrence: CO)
  Receive Date: 20170317
  Receipt Date: 20180214
  Transmission Date: 20180508
  Serious: Yes (Hospitalization)
  Sender: FDA-Public Use
  Company Number: PHHY2016CO119174

PATIENT
  Age: 47 Year
  Sex: Female
  Weight: 56 kg

DRUGS (4)
  1. REVOLADE [Suspect]
     Active Substance: ELTROMBOPAG
     Dosage: 25 MG, QD
     Route: 048
  2. REVOLADE [Suspect]
     Active Substance: ELTROMBOPAG
     Dosage: 50 MG, QD
     Route: 048
     Dates: end: 20170223
  3. REVOLADE [Suspect]
     Active Substance: ELTROMBOPAG
     Indication: IMMUNE THROMBOCYTOPENIC PURPURA
     Dosage: 50 MG, QD
     Route: 048
     Dates: start: 20160314, end: 201611
  4. PREDNISONE. [Concomitant]
     Active Substance: PREDNISONE
     Indication: PRODUCT USED FOR UNKNOWN INDICATION
     Dosage: 50 MG, QD
     Route: 065

REACTIONS (17)
  - Skin discolouration [Unknown]
  - Cellulitis [Unknown]
  - Psychiatric symptom [Unknown]
  - Petechiae [Recovered/Resolved]
  - Burning sensation [Unknown]
  - Pain in extremity [Unknown]
  - Fatigue [Unknown]
  - Epistaxis [Recovered/Resolved]
  - Dizziness [Unknown]
  - Petechiae [Unknown]
  - Platelet count decreased [Unknown]
  - Contusion [Recovered/Resolved]
  - Contusion [Unknown]
  - Headache [Not Recovered/Not Resolved]
  - Dermatitis [Recovered/Resolved]
  - Malaise [Unknown]
  - Petechiae [Recovered/Resolved]

NARRATIVE: CASE EVENT DATE: 201608
